FAERS Safety Report 16397189 (Version 2)
Quarter: 2019Q2

REPORT INFORMATION
  Report Type: Spontaneous
  Country: CZ (occurrence: CZ)
  Receive Date: 20190606
  Receipt Date: 20190607
  Transmission Date: 20190711
  Serious: Yes (Other)
  Sender: FDA-Public Use
  Company Number: CZ-CELLTRION INC.-2019CZ021676

PATIENT

DRUGS (9)
  1. TRUXIMA [Suspect]
     Active Substance: RITUXIMAB-ABBS
     Dosage: UNK, TWO CYCLES (R-ESAP)
     Route: 065
  2. FND [MITOXANTRONE] [Suspect]
     Active Substance: MITOXANTRONE HYDROCHLORIDE
  3. FND [FLUDARABINE] [Suspect]
     Active Substance: FLUDARABINE PHOSPHATE
  4. ESHAP [Suspect]
     Active Substance: CISPLATIN\CYTARABINE\ETOPOSIDE\METHYLPREDNISOLONE (ESHAP)
     Indication: COMPOSITE LYMPHOMA
     Dosage: UNK, TWO CYCLES
     Route: 065
  5. OBINUTUZUMAB. [Suspect]
     Active Substance: OBINUTUZUMAB
     Indication: COMPOSITE LYMPHOMA
     Dosage: UNK, 3 CYCLES
     Dates: start: 201805
  6. BENDAMUSTINE [Suspect]
     Active Substance: BENDAMUSTINE
     Indication: COMPOSITE LYMPHOMA
     Dosage: UNK, 3 CYCLES
     Dates: start: 201805
  7. TRUXIMA [Suspect]
     Active Substance: RITUXIMAB-ABBS
     Indication: COMPOSITE LYMPHOMA
     Dosage: UNK, 6 CYCLES
     Route: 065
  8. FND [DEXAMETHASONE] [Suspect]
     Active Substance: DEXAMETHASONE
     Indication: COMPOSITE LYMPHOMA
     Dosage: UNK, 2 CYCLES
     Route: 065
  9. EPOCH [CYCLOPHOSPHAMIDE;DOXORUBICIN HYDROCHLORIDE;ETOPOSIDE;PREDNISONE [Suspect]
     Active Substance: CYCLOPHOSPHAMIDE\DOXORUBICIN\ETOPOSIDE\PREDNISONE\VINCRISTINE
     Indication: COMPOSITE LYMPHOMA
     Dosage: UNK, 6 CYCLES
     Route: 065

REACTIONS (1)
  - Disease progression [Unknown]
